FAERS Safety Report 9319103 (Version 1)
Quarter: 2013Q2

REPORT INFORMATION
  Report Type: Spontaneous
  Country: US (occurrence: US)
  Receive Date: 20130530
  Receipt Date: 20130530
  Transmission Date: 20140414
  Serious: No
  Sender: FDA-Public Use
  Company Number: US-NOVEN-13US006050

PATIENT
  Age: 8 Year
  Sex: Male

DRUGS (3)
  1. DAYTRANA [Suspect]
     Indication: ATTENTION DEFICIT/HYPERACTIVITY DISORDER
     Dosage: 10 MG, UNK
     Route: 062
     Dates: start: 2012, end: 2012
  2. DAYTRANA [Suspect]
     Dosage: 15 MG, UNK
     Route: 062
     Dates: start: 2012
  3. MELATONIN [Concomitant]
     Indication: INSOMNIA
     Route: 048

REACTIONS (3)
  - Insomnia [Not Recovered/Not Resolved]
  - Decreased appetite [Not Recovered/Not Resolved]
  - Weight gain poor [Not Recovered/Not Resolved]
